FAERS Safety Report 9261746 (Version 1)
Quarter: 2013Q2

REPORT INFORMATION
  Report Type: Spontaneous
  Country: US (occurrence: US)
  Receive Date: 20130429
  Receipt Date: 20130429
  Transmission Date: 20140414
  Serious: Yes (Death)
  Sender: FDA-Public Use
  Company Number: US-BAXTER-2013BAX015747

PATIENT
  Sex: 0

DRUGS (14)
  1. CYTOXAN (CYCLOPHOSPHAMIDE FOR INJECTION, USP) 2 GRAM VIAL (LYOPHILIZE [Suspect]
     Indication: HODGKIN^S DISEASE
     Route: 065
  2. MECHLORETHAMINE [Suspect]
     Indication: HODGKIN^S DISEASE
     Dosage: MOPP
     Route: 065
  3. VINCRISTINE [Suspect]
     Indication: HODGKIN^S DISEASE
     Dosage: MOPP
     Route: 065
  4. VINCRISTINE [Suspect]
     Dosage: PAVE
     Route: 065
  5. PROCARBAZINE [Suspect]
     Indication: HODGKIN^S DISEASE
     Dosage: MOPP
     Route: 065
  6. PROCARBAZINE [Suspect]
     Dosage: PAVE
     Route: 065
  7. PREDNISONE [Suspect]
     Indication: HODGKIN^S DISEASE
     Dosage: MOPP
     Route: 065
  8. DOXORUBICIN [Suspect]
     Indication: HODGKIN^S DISEASE
     Dosage: ABVD
     Route: 065
  9. BLEOMYCIN [Suspect]
     Indication: HODGKIN^S DISEASE
     Dosage: ABVD
     Route: 065
  10. VINBLASTINE [Suspect]
     Indication: HODGKIN^S DISEASE
     Dosage: ABVD
     Route: 065
  11. DACARBAZINE [Suspect]
     Indication: HODGKIN^S DISEASE
     Dosage: ABVD
     Route: 065
  12. CHLORAMBUCIL [Suspect]
     Indication: HODGKIN^S DISEASE
     Route: 065
  13. ETOPOSIDE [Suspect]
     Indication: HODGKIN^S DISEASE
     Route: 065
  14. MELPHALAN [Suspect]
     Indication: HODGKIN^S DISEASE
     Route: 065

REACTIONS (2)
  - Myelodysplastic syndrome [Fatal]
  - Second primary malignancy [Fatal]
